FAERS Safety Report 14119309 (Version 1)
Quarter: 2017Q4

REPORT INFORMATION
  Report Type: Spontaneous
  Country: US (occurrence: US)
  Receive Date: 20171024
  Receipt Date: 20171024
  Transmission Date: 20180321
  Serious: No
  Sender: FDA-Public Use
  Company Number: US-PFIZER INC-2017453384

PATIENT

DRUGS (2)
  1. EUCRISA [Suspect]
     Active Substance: CRISABOROLE
     Indication: SKIN LESION
  2. EUCRISA [Suspect]
     Active Substance: CRISABOROLE
     Indication: WOUND
     Dosage: UNK

REACTIONS (1)
  - Application site pain [Unknown]
